FAERS Safety Report 7353348-5 (Version None)
Quarter: 2011Q1

REPORT INFORMATION
  Report Type: 
  Country: None (occurrence: None)
  Receive Date: 20110310
  Receipt Date: 20110310
  Transmission Date: 20110831
  Serious: No
  Sender: FDA-Public Use
  Company Number: None

PATIENT
  Age: 38 Year
  Sex: Male

DRUGS (3)
  1. ATRIPLA [Concomitant]
  2. LOSARTAN POTASSIUM [Suspect]
     Indication: HYPERTENSION
     Dosage: 100 MG QO MG PO
     Route: 048
     Dates: start: 20110214, end: 20110224
  3. NIFEDIPINE [Concomitant]

REACTIONS (4)
  - FACE OEDEMA [None]
  - RASH [None]
  - ANGIOEDEMA [None]
  - DYSPHONIA [None]
